FAERS Safety Report 5293049-0 (Version None)
Quarter: 2007Q2

REPORT INFORMATION
  Report Type: 
  Country: None (occurrence: None)
  Receive Date: 20070411
  Receipt Date: 20070405
  Transmission Date: 20071010
  Serious: Yes (Life-Threatening)
  Sender: FDA-Public Use
  Company Number: PHBS2007PH06061

PATIENT
  Age: 48 Year
  Sex: Female

DRUGS (1)
  1. ZELNORM [Suspect]
     Route: 048

REACTIONS (1)
  - MYOCARDIAL INFARCTION [None]
